FAERS Safety Report 4380785-3 (Version None)
Quarter: 2004Q2

REPORT INFORMATION
  Report Type: 
  Country: None (occurrence: None)
  Receive Date: 20040616
  Receipt Date: 20040604
  Transmission Date: 20050107
  Serious: Yes (Other)
  Sender: FDA-Public Use
  Company Number: 2004217580FR

PATIENT
  Age: 32 Year
  Sex: Female

DRUGS (2)
  1. ZYVOX [Suspect]
     Indication: NOCARDIOSIS
     Dosage: 600 MG, BID, ORAL
     Route: 048
     Dates: start: 20040101, end: 20040501
  2. NEURONTIN [Concomitant]

REACTIONS (2)
  - HAEMOLYTIC ANAEMIA [None]
  - NEUROPATHY PERIPHERAL [None]
